FAERS Safety Report 6025420-3 (Version None)
Quarter: 2008Q4

REPORT INFORMATION
  Report Type: 
  Country: None (occurrence: None)
  Receive Date: 20081231
  Receipt Date: 20081226
  Transmission Date: 20090506
  Serious: Yes (Other)
  Sender: FDA-Public Use
  Company Number: KR-ABBOTT-08P-090-0494070-00

PATIENT
  Age: 60 Year
  Sex: Male

DRUGS (6)
  1. HUMIRA [Suspect]
     Indication: ANKYLOSING SPONDYLITIS
     Dates: start: 20071102
  2. SULFASALAZINE [Concomitant]
     Indication: RHEUMATOID ARTHRITIS
     Route: 048
  3. SULFASALAZINE [Concomitant]
     Indication: PROPHYLAXIS
  4. MELOXICAM [Concomitant]
     Indication: ANTIINFLAMMATORY THERAPY
     Route: 048
  5. MELOXICAM [Concomitant]
     Indication: ANALGESIA
  6. RIFAMPICIN [Concomitant]
     Indication: LATENT TUBERCULOSIS
     Dates: start: 20071001, end: 20080128

REACTIONS (2)
  - ABDOMINAL PAIN [None]
  - BENIGN SALIVARY GLAND NEOPLASM [None]
